FAERS Safety Report 4423536-6 (Version None)
Quarter: 2004Q3

REPORT INFORMATION
  Report Type: 
  Country: None (occurrence: None)
  Receive Date: 20040805
  Receipt Date: 20040726
  Transmission Date: 20050211
  Serious: Yes (Death, Disabling)
  Sender: FDA-Public Use
  Company Number: 04H-062-0268209-00

PATIENT
  Age: 55 Year
  Sex: Female

DRUGS (3)
  1. HEPARIN SODIUM [Suspect]
     Dosage: 7500 UNIT, 2 IN 1 D, SUBCUTANEOUS
     Route: 058
  2. HEPARIN SODIUM [Suspect]
     Indication: DEEP VEIN THROMBOSIS
     Route: 042
  3. ANTIMICROBIOTIC CHEMOTHERAPY [Concomitant]

REACTIONS (17)
  - ARM AMPUTATION [None]
  - CEREBRAL VENOUS THROMBOSIS [None]
  - DEEP VEIN THROMBOSIS [None]
  - DEPRESSED LEVEL OF CONSCIOUSNESS [None]
  - DISSEMINATED INTRAVASCULAR COAGULATION [None]
  - GANGRENE [None]
  - HEPARIN-INDUCED THROMBOCYTOPENIA [None]
  - JUGULAR VEIN THROMBOSIS [None]
  - PHLEBOTHROMBOSIS [None]
  - PULMONARY ARTERY THROMBOSIS [None]
  - PULMONARY EMBOLISM [None]
  - RESPIRATORY DISORDER [None]
  - RESUSCITATION [None]
  - SHOCK [None]
  - SUBCLAVIAN VEIN THROMBOSIS [None]
  - SUPERIOR SAGITTAL SINUS THROMBOSIS [None]
  - VEIN DISORDER [None]
